FAERS Safety Report 16343403 (Version 3)
Quarter: 2019Q4

REPORT INFORMATION
  Report Type: Spontaneous
  Country: US (occurrence: US)
  Receive Date: 20190522
  Receipt Date: 20191108
  Transmission Date: 20200122
  Serious: Yes (Other)
  Sender: FDA-Public Use
  Company Number: US-LEXICON PHARMACEUTICALS, INC-19-1606-00506

PATIENT
  Sex: Female

DRUGS (4)
  1. TELOTRISTAT ETHYL [Suspect]
     Active Substance: TELOTRISTAT ETHYL
     Indication: CARCINOID SYNDROME
  2. METHADONE [Concomitant]
     Active Substance: METHADONE HYDROCHLORIDE
  3. SANDOSTATIN [Concomitant]
     Active Substance: OCTREOTIDE ACETATE
     Route: 065
  4. TELOTRISTAT ETHYL [Suspect]
     Active Substance: TELOTRISTAT ETHYL
     Indication: CARCINOID TUMOUR
     Route: 048
     Dates: start: 20180421

REACTIONS (5)
  - Off label use [Unknown]
  - Abdominal pain upper [Unknown]
  - Hospice care [Not Recovered/Not Resolved]
  - Abdominal distension [Unknown]
  - Hypotension [Unknown]
